FAERS Safety Report 9916111 (Version 2)
Quarter: 2014Q1

REPORT INFORMATION
  Report Type: Report from Study
  Country: AU (occurrence: AU)
  Receive Date: 20140221
  Receipt Date: 20140221
  Transmission Date: 20141002
  Serious: Yes (Life-Threatening, Hospitalization, Other)
  Sender: FDA-Public Use
  Company Number: AU-BRISTOL-MYERS SQUIBB COMPANY-19735794

PATIENT
  Age: 81 Year
  Sex: Female

DRUGS (8)
  1. ORENCIA [Suspect]
     Indication: RHEUMATOID ARTHRITIS
     Dosage: LAST DOSE ON 26NOV2013
     Route: 042
     Dates: start: 20080617
  2. FOSAMAX [Concomitant]
  3. CALTRATE + D [Concomitant]
  4. FOLIC ACID [Concomitant]
     Dosage: 1DF=5-UNITS NOS
  5. PREDNISOLONE [Concomitant]
     Dosage: 1DF=4-UNITS NOS
  6. TEMAZEPAM [Concomitant]
  7. METHOTREXATE [Concomitant]
  8. MONOPRIL [Concomitant]

REACTIONS (8)
  - Heart rate irregular [Recovered/Resolved with Sequelae]
  - Tachycardia [Recovered/Resolved with Sequelae]
  - Infection [Recovered/Resolved with Sequelae]
  - Atrial fibrillation [Unknown]
  - Fall [Unknown]
  - Spinal fracture [Unknown]
  - Urinary tract infection [Recovered/Resolved with Sequelae]
  - Factor V deficiency [Unknown]
